FAERS Safety Report 7512315-9 (Version None)
Quarter: 2011Q2

REPORT INFORMATION
  Report Type: 
  Country: None (occurrence: None)
  Receive Date: 20110531
  Receipt Date: 20110517
  Transmission Date: 20111010
  Serious: Yes (Other)
  Sender: FDA-Public Use
  Company Number: PHHY2011DE43695

PATIENT
  Age: 84 Year
  Sex: Male

DRUGS (3)
  1. VITAMIN D [Concomitant]
     Dosage: 1000 IU, UNK
  2. ZOLEDRONIC ACID [Suspect]
  3. CALCIUM CARBONATE [Concomitant]
     Dosage: 1000 MG, DAILY

REACTIONS (4)
  - GRAND MAL CONVULSION [None]
  - LOSS OF CONSCIOUSNESS [None]
  - CONVULSION [None]
  - HIP FRACTURE [None]
